FAERS Safety Report 8003302-5 (Version None)
Quarter: 2011Q4

REPORT INFORMATION
  Report Type: 
  Country: None (occurrence: None)
  Receive Date: 20111222
  Receipt Date: 20111219
  Transmission Date: 20120403
  Serious: Yes (Death)
  Sender: FDA-Public Use
  Company Number: PHHY2011AR110507

PATIENT
  Sex: Male

DRUGS (1)
  1. EXELON [Suspect]
     Indication: MEMORY IMPAIRMENT
     Dosage: 1 DF, (1 PATCH DAILY)
     Route: 062

REACTIONS (1)
  - ACCIDENT [None]
